FAERS Safety Report 21898701 (Version 1)
Quarter: 2023Q1

REPORT INFORMATION
  Report Type: Spontaneous
  Country: US (occurrence: None)
  Receive Date: 20230122
  Receipt Date: 20230122
  Transmission Date: 20230418
  Serious: Yes (Other)
  Sender: FDA-Public Use
  Company Number: None

PATIENT
  Age: 38 Year
  Sex: Female
  Weight: 60.75 kg

DRUGS (7)
  1. SIMPLY NEOSPORIN FIRST AID ANTIBIOTIC [Suspect]
     Active Substance: BACITRACIN ZINC\POLYMYXIN B SULFATE
     Indication: Skin infection
     Dates: start: 20230119, end: 20230119
  2. Vitamin D 50000 IU [Concomitant]
  3. Methylcobalamin intramuscular shots [Concomitant]
  4. Tylenol Extra [Concomitant]
  5. Nutricology Buffered [Concomitant]
  6. Vitamin C capsules [Concomitant]
  7. Vitassium Salt [Concomitant]

REACTIONS (7)
  - Skin burning sensation [None]
  - Dyskinesia [None]
  - Dyspnoea [None]
  - Hyperventilation [None]
  - Nausea [None]
  - Retching [None]
  - Pruritus [None]

NARRATIVE: CASE EVENT DATE: 20230119
